FAERS Safety Report 14422726 (Version 5)
Quarter: 2018Q2

REPORT INFORMATION
  Report Type: Report from Study
  Country: TW (occurrence: TW)
  Receive Date: 20180123
  Receipt Date: 20180406
  Transmission Date: 20180711
  Serious: Yes (Hospitalization)
  Sender: FDA-Public Use
  Company Number: TW-ASTRAZENECA-2018SE06309

PATIENT
  Age: 24447 Day
  Sex: Male

DRUGS (18)
  1. METOCLOPRAMIDE. [Concomitant]
     Active Substance: METOCLOPRAMIDE
     Indication: ABDOMINAL DISCOMFORT
     Route: 042
     Dates: start: 20171227, end: 20171229
  2. DIMETHICONE. [Concomitant]
     Active Substance: DIMETHICONE
     Indication: ABDOMINAL DISCOMFORT
     Route: 048
     Dates: start: 20171227
  3. TRAMADOL AND ACETAMINOPHEN [Concomitant]
     Active Substance: ACETAMINOPHEN\TRAMADOL HYDROCHLORIDE
     Indication: CHEST PAIN
     Route: 048
     Dates: start: 20171227
  4. HYOSCYAMINE. [Concomitant]
     Active Substance: HYOSCYAMINE
     Indication: ABDOMINAL DISCOMFORT
     Dosage: 0.125MG ONCE/SINGLE ADMINISTRATION
     Route: 048
     Dates: start: 20171229, end: 20171229
  5. DOMPERIDONE [Concomitant]
     Active Substance: DOMPERIDONE
     Indication: ABDOMINAL DISCOMFORT
     Route: 048
     Dates: start: 20171229
  6. ESOMEPRAZOLE [Concomitant]
     Active Substance: ESOMEPRAZOLE
     Indication: ABDOMINAL DISCOMFORT
     Dosage: 40.0MG ONCE/SINGLE ADMINISTRATION
     Route: 048
     Dates: start: 20171228
  7. MEDI4736 [Suspect]
     Active Substance: DURVALUMAB
     Indication: NON-SMALL CELL LUNG CANCER
     Route: 042
     Dates: start: 20171219, end: 20171219
  8. MEDI4736 [Suspect]
     Active Substance: DURVALUMAB
     Indication: NON-SMALL CELL LUNG CANCER
     Route: 042
     Dates: start: 20171107, end: 20171107
  9. MEDI4736 [Suspect]
     Active Substance: DURVALUMAB
     Indication: NON-SMALL CELL LUNG CANCER
     Route: 042
     Dates: start: 20171128, end: 20171128
  10. SENNOSIDE [Concomitant]
     Active Substance: SENNOSIDES
     Indication: CONSTIPATION
     Route: 048
     Dates: start: 20171227
  11. CODEINE [Concomitant]
     Active Substance: CODEINE
     Indication: COUGH
     Dosage: 30 MG BID-HS
     Route: 048
     Dates: start: 20171228
  12. ACETYLCYSTEINE. [Concomitant]
     Active Substance: ACETYLCYSTEINE
     Indication: COUGH
     Route: 048
     Dates: start: 20171228
  13. CARBOPLATIN. [Suspect]
     Active Substance: CARBOPLATIN
     Indication: NON-SMALL CELL LUNG CANCER
     Dosage: 6.0 AUC ONCE/SINGLE ADMINISTRATION
     Route: 042
     Dates: start: 20171017, end: 20171017
  14. CODEINE [Concomitant]
     Active Substance: CODEINE
     Indication: COUGH
     Route: 048
     Dates: start: 20171227, end: 20171229
  15. MEDI4736 [Suspect]
     Active Substance: DURVALUMAB
     Indication: NON-SMALL CELL LUNG CANCER
     Route: 042
     Dates: start: 20171017, end: 20171017
  16. PEMETREXED. [Suspect]
     Active Substance: PEMETREXED
     Indication: NON-SMALL CELL LUNG CANCER
     Dosage: 500.0MG/M2 ONCE/SINGLE ADMINISTRATION
     Route: 042
     Dates: start: 20171017, end: 20171017
  17. POTASSIUM GLUCONATE [Concomitant]
     Active Substance: POTASSIUM GLUCONATE
     Indication: HYPOKALAEMIA
     Route: 048
     Dates: start: 20171229
  18. METOCLOPRAMIDE. [Concomitant]
     Active Substance: METOCLOPRAMIDE
     Indication: ABDOMINAL DISCOMFORT
     Route: 042
     Dates: start: 20171229, end: 20171229

REACTIONS (1)
  - Vomiting [Recovered/Resolved]

NARRATIVE: CASE EVENT DATE: 20180112
